FAERS Safety Report 7258259-1 (Version None)
Quarter: 2011Q1

REPORT INFORMATION
  Report Type: 
  Country: None (occurrence: None)
  Receive Date: 20110129
  Receipt Date: 20100707
  Transmission Date: 20110831
  Serious: No
  Sender: FDA-Public Use
  Company Number: US-ABBOTT-10P-163-0656030-00

PATIENT
  Age: 43 Year
  Sex: Female

DRUGS (5)
  1. HUMIRA [Suspect]
  2. HUMIRA [Suspect]
  3. ASACOL [Concomitant]
     Indication: CROHN'S DISEASE
  4. HUMIRA [Suspect]
     Indication: CROHN'S DISEASE
     Dates: start: 20100601
  5. AZT [Concomitant]
     Indication: CROHN'S DISEASE

REACTIONS (3)
  - FATIGUE [None]
  - THROAT IRRITATION [None]
  - RHINORRHOEA [None]
